FAERS Safety Report 14935209 (Version 3)
Quarter: 2018Q2

REPORT INFORMATION
  Report Type: Spontaneous
  Country: FR (occurrence: FR)
  Receive Date: 20180524
  Receipt Date: 20180530
  Transmission Date: 20180711
  Serious: Yes (Hospitalization)
  Sender: FDA-Public Use
  Company Number: FR-TEVA-2018-FR-895971

PATIENT
  Age: 62 Year
  Sex: Male
  Weight: 85 kg

DRUGS (5)
  1. BICNU [Suspect]
     Active Substance: CARMUSTINE
     Indication: NON-HODGKIN^S LYMPHOMA
     Dosage: 581 MILLIGRAM DAILY;
     Route: 042
     Dates: start: 20160104, end: 20160104
  2. ETOPOSIDE. [Suspect]
     Active Substance: ETOPOSIDE
     Indication: NON-HODGKIN^S LYMPHOMA
     Dosage: 290 MILLIGRAM DAILY;
     Route: 042
     Dates: start: 20160105, end: 20160108
  3. CYTARABINE EG [Suspect]
     Active Substance: CYTARABINE
     Indication: NON-HODGKIN^S LYMPHOMA
     Dosage: 770 MILLIGRAM DAILY;
     Route: 042
     Dates: start: 20160105, end: 20160108
  4. METHYLPREDNISOLONE MYLAN [Concomitant]
     Active Substance: METHYLPREDNISOLONE
     Dosage: 1 DOSAGE FORMS DAILY;
     Route: 042
     Dates: start: 20160104
  5. ALKERAN [Suspect]
     Active Substance: MELPHALAN
     Indication: NON-HODGKIN^S LYMPHOMA
     Dosage: 270 MILLIGRAM DAILY;
     Route: 042
     Dates: start: 20160109, end: 20160109

REACTIONS (5)
  - Aplasia [Recovered/Resolved]
  - Mucosal inflammation [Recovered/Resolved]
  - Cholestasis [Recovered/Resolved]
  - Escherichia infection [Recovered/Resolved]
  - Rash [Recovered/Resolved]

NARRATIVE: CASE EVENT DATE: 20160106
